FAERS Safety Report 18431970 (Version 1)
Quarter: 2020Q4

REPORT INFORMATION
  Report Type: Spontaneous
  Country: GB (occurrence: GB)
  Receive Date: 20201027
  Receipt Date: 20201027
  Transmission Date: 20210114
  Serious: Yes (Other)
  Sender: FDA-Public Use
  Company Number: GB-JNJFOC-20201029999

PATIENT
  Age: 22 Year
  Sex: Male

DRUGS (2)
  1. RIVAROXABAN [Suspect]
     Active Substance: RIVAROXABAN
     Indication: PRODUCT USED FOR UNKNOWN INDICATION
     Dosage: (LONGTERM), 2.5MG AND 10MG
     Route: 048
     Dates: start: 202001
  2. GABAPENTIN. [Concomitant]
     Active Substance: GABAPENTIN
     Dosage: 1200 MG, QD
     Dates: start: 20200916

REACTIONS (3)
  - Rectal haemorrhage [Recovered/Resolved]
  - Gastrointestinal haemorrhage [Unknown]
  - Diverticulum [Unknown]
